FAERS Safety Report 20616192 (Version 2)
Quarter: 2022Q1

REPORT INFORMATION
  Report Type: Spontaneous
  Country: NL (occurrence: NL)
  Receive Date: 20220321
  Receipt Date: 20220328
  Transmission Date: 20220424
  Serious: Yes (Other)
  Sender: FDA-Public Use
  Company Number: None

PATIENT
  Age: 23 Year
  Sex: Female

DRUGS (19)
  1. TOPIRAMATE [Suspect]
     Active Substance: TOPIRAMATE
     Indication: Post-traumatic epilepsy
     Dosage: 25 MILLIGRAM, QD(1 X 1 PIECE) (START DATE:FEB-2022)
  2. TOPIRAMATE [Suspect]
     Active Substance: TOPIRAMATE
     Indication: Nightmare
  3. SEROQUEL [Concomitant]
     Active Substance: QUETIAPINE FUMARATE
     Dosage: 75MG TOTAAL IN 3X25
  4. EBASTINE [Concomitant]
     Active Substance: EBASTINE
     Dosage: COATED TABLET, 10 MG (MILLIGRAMS)
  5. PANTOPRAZOLE SODIUM [Concomitant]
     Active Substance: PANTOPRAZOLE SODIUM
     Dosage: GASTRORESISTANT TABLET, 20 MG (MILLIGRAMS)
  6. SYMBICORT [Concomitant]
     Active Substance: BUDESONIDE\FORMOTEROL FUMARATE DIHYDRATE
     Dosage: INHALATION POWDER, 200/6 ?G/DOSE (MICROGRAM S PER DOSE)
  7. METOPROLOL [Concomitant]
     Active Substance: METOPROLOL
     Dosage: TABLET, 50 MG (MILLIGRAM)
  8. METHYLPHENIDATE HYDROCHLORIDE [Concomitant]
     Active Substance: METHYLPHENIDATE HYDROCHLORIDE
     Dosage: MODIFIEDRELEASE CAPSULE, 30 MG (MILLIGRAMS)
  9. ALLERGENIC EXTRACTS [Concomitant]
     Active Substance: ALLERGENIC EXTRACTS
     Dosage: UNK
  10. MONTELUKAST [Concomitant]
     Active Substance: MONTELUKAST SODIUM
     Dosage: OMHULDE TABLET, 10 MG (MILLIGRAM)
  11. VORTIOXETINE [Concomitant]
     Active Substance: VORTIOXETINE
     Dosage: TABLET, 20 MG (MILLIGRAM)
  12. ASCORBINEZUUR [Concomitant]
     Dosage: UNK
  13. HYDROCORTISONE BUTYRATE [Concomitant]
     Active Substance: HYDROCORTISONE BUTYRATE
     Dosage: CREME, 1 MG/G (MILLIGRAM PER GRAM)
  14. ALBUTEROL [Concomitant]
     Active Substance: ALBUTEROL
     Dosage: INHALATIEPOEDER, 200 ?G/DOSIS (MICROGRAM PER DOSIS)
  15. FLUTICASON CIPLA [Concomitant]
     Dosage: CREME, 0,5 MG/G (MILLIGRAM PER GRAM)
  16. OXAZEPAM [Concomitant]
     Active Substance: OXAZEPAM
     Dosage: TABLET, 10 MG (MILLIGRAM)
  17. AZELASTINE HYDROCHLORIDE\FLUTICASONE PROPIONATE [Concomitant]
     Active Substance: AZELASTINE HYDROCHLORIDE\FLUTICASONE PROPIONATE
     Dosage: NEUSSPRAY, 137/50 ?G/DOSIS (MICROGRAM PER DOSIS)
  18. Allergovit [Concomitant]
     Dosage: SUSPENSIE VOOR INJECTIE
  19. RIZATRIPTAN [Concomitant]
     Active Substance: RIZATRIPTAN
     Dosage: SMELTTABLET, 10 MG (MILLIGRAM)

REACTIONS (9)
  - Bradycardia [Not Recovered/Not Resolved]
  - Nocturia [Recovered/Resolved]
  - Emotional poverty [Not Recovered/Not Resolved]
  - Hypotension [Recovering/Resolving]
  - Visual impairment [Not Recovered/Not Resolved]
  - Fatigue [Recovering/Resolving]
  - Weight decreased [Not Recovered/Not Resolved]
  - Sexual dysfunction [Not Recovered/Not Resolved]
  - Decreased appetite [Not Recovered/Not Resolved]

NARRATIVE: CASE EVENT DATE: 20220202
